FAERS Safety Report 24052734 (Version 2)
Quarter: 2024Q3

REPORT INFORMATION
  Report Type: Spontaneous
  Country: US (occurrence: US)
  Receive Date: 20240705
  Receipt Date: 20240813
  Transmission Date: 20241017
  Serious: No
  Sender: ROCHE
  Company Number: US-ROCHE-10000013350

PATIENT

DRUGS (1)
  1. XOLAIR [Suspect]
     Active Substance: OMALIZUMAB
     Indication: Product used for unknown indication
     Route: 065

REACTIONS (6)
  - Autoimmune disorder [Unknown]
  - Urticaria [Unknown]
  - Gastrointestinal inflammation [Unknown]
  - Eye inflammation [Unknown]
  - Carditis [Unknown]
  - Gastritis [Unknown]
